FAERS Safety Report 24225761 (Version 4)
Quarter: 2024Q4

REPORT INFORMATION
  Report Type: Report from Study
  Country: CA (occurrence: CA)
  Receive Date: 20240820
  Receipt Date: 20241220
  Transmission Date: 20250114
  Serious: Yes (Other)
  Sender: SAMSUNG BIOEPIS
  Company Number: CA-SAMSUNG BIOEPIS-SB-2024-25005

PATIENT
  Age: 64 Year
  Sex: Male

DRUGS (9)
  1. HADLIMA [Suspect]
     Active Substance: ADALIMUMAB-BWWD
     Indication: Ankylosing spondylitis
     Dosage: 40 MG/0.8 ML;
     Dates: start: 20220218
  2. HADLIMA [Suspect]
     Active Substance: ADALIMUMAB-BWWD
     Route: 058
     Dates: start: 20240822
  3. HADLIMA [Suspect]
     Active Substance: ADALIMUMAB-BWWD
     Route: 058
  4. PREDNISONE [Suspect]
     Active Substance: PREDNISONE
     Indication: Product used for unknown indication
  5. IRBESARTAN [Concomitant]
     Active Substance: IRBESARTAN
     Indication: Product used for unknown indication
  6. INSULIN NOS [Concomitant]
     Active Substance: INSULIN NOS
     Indication: Product used for unknown indication
  7. METFORMIN [Concomitant]
     Active Substance: METFORMIN HYDROCHLORIDE
     Indication: Product used for unknown indication
  8. ROSUVASTATIN [Concomitant]
     Active Substance: ROSUVASTATIN
     Indication: Product used for unknown indication
  9. Puffer [Concomitant]
     Indication: Product used for unknown indication
     Dosage: PRN;

REACTIONS (15)
  - Macular oedema [Not Recovered/Not Resolved]
  - Uveitis [Not Recovered/Not Resolved]
  - Cataract [Not Recovered/Not Resolved]
  - Intraocular pressure increased [Not Recovered/Not Resolved]
  - Abdominal tenderness [Not Recovered/Not Resolved]
  - Ulcer haemorrhage [Not Recovered/Not Resolved]
  - Nausea [Not Recovered/Not Resolved]
  - Fungal skin infection [Not Recovered/Not Resolved]
  - Anxiety [Not Recovered/Not Resolved]
  - Dizziness [Not Recovered/Not Resolved]
  - Nervousness [Unknown]
  - Polyp [Recovered/Resolved]
  - Dark circles under eyes [Not Recovered/Not Resolved]
  - Fatigue [Not Recovered/Not Resolved]
  - Poor quality sleep [Not Recovered/Not Resolved]
